FAERS Safety Report 26074018 (Version 1)
Quarter: 2025Q4

REPORT INFORMATION
  Report Type: Spontaneous
  Country: US (occurrence: US)
  Receive Date: 20251121
  Receipt Date: 20251121
  Transmission Date: 20260117
  Serious: No
  Sender: ALVOGEN
  Company Number: None

PATIENT
  Sex: Male

DRUGS (1)
  1. TERIPARATIDE [Suspect]
     Active Substance: TERIPARATIDE
     Indication: Product used for unknown indication
     Dosage: POTENCY: 250 UG IN 1 ML?CARTON 1?EXPIRATION DATE: 31-MAR-2023

REACTIONS (3)
  - Device malfunction [Unknown]
  - Device operational issue [Unknown]
  - Incorrect dose administered by device [Unknown]
